FAERS Safety Report 9948154 (Version 1)
Quarter: 2014Q1

REPORT INFORMATION
  Report Type: Spontaneous
  Country: US (occurrence: US)
  Receive Date: 20140303
  Receipt Date: 20140303
  Transmission Date: 20141002
  Serious: Yes (Other)
  Sender: FDA-Public Use
  Company Number: US-ABBVIE-13P-163-1061194-00

PATIENT
  Age: 54 Year
  Sex: Female

DRUGS (3)
  1. HUMIRA [Suspect]
     Indication: PSORIASIS
     Route: 050
     Dates: start: 201210, end: 201210
  2. HUMIRA [Suspect]
     Route: 050
     Dates: end: 20130307
  3. CYMBALTA [Suspect]
     Indication: DEPRESSION
     Dates: start: 201212, end: 20130307

REACTIONS (2)
  - Lupus-like syndrome [Not Recovered/Not Resolved]
  - Rash erythematous [Not Recovered/Not Resolved]
